FAERS Safety Report 4324696-8 (Version None)
Quarter: 2004Q1

REPORT INFORMATION
  Report Type: 
  Country: None (occurrence: None)
  Receive Date: 20040323
  Receipt Date: 20040311
  Transmission Date: 20041129
  Serious: Yes (Death, Hospitalization)
  Sender: FDA-Public Use
  Company Number: 04P-163-0253118-00

PATIENT
  Age: 67 Year
  Sex: Male

DRUGS (13)
  1. HUMIRA [Suspect]
     Indication: RHEUMATOID ARTHRITIS
     Dosage: 40 MG, 1 IN 2 WK, SUBCUTANEOUS
     Route: 058
     Dates: start: 20030602
  2. METHOTREXATE [Concomitant]
  3. PREDNISONE [Concomitant]
  4. IRBESARTAN [Concomitant]
  5. INSULIN LISPRO [Concomitant]
  6. INSULIN GLARGINE [Concomitant]
  7. DILTIAZEM [Concomitant]
  8. GABAPENTIN [Concomitant]
  9. FOLIC ACID [Concomitant]
  10. ULTRACET [Concomitant]
  11. OMEPRAZOLE [Concomitant]
  12. RISPERIDONE [Concomitant]
  13. CELECOXIB [Concomitant]

REACTIONS (1)
  - DIABETES MELLITUS INADEQUATE CONTROL [None]
